FAERS Safety Report 7072193-1 (Version None)
Quarter: 2010Q4

REPORT INFORMATION
  Report Type: 
  Country: None (occurrence: None)
  Receive Date: 20101029
  Receipt Date: 20100112
  Transmission Date: 20110411
  Serious: No
  Sender: FDA-Public Use
  Company Number: A0835423A

PATIENT
  Age: 68 Year
  Sex: Female

DRUGS (2)
  1. ADVAIR DISKUS 100/50 [Suspect]
     Indication: LUNG OPERATION
     Dosage: 1PUFF TWICE PER DAY
     Route: 055
     Dates: start: 20091101, end: 20091101
  2. NO CONCURRENT MEDICATION [Concomitant]

REACTIONS (7)
  - FEELING ABNORMAL [None]
  - GASTROOESOPHAGEAL REFLUX DISEASE [None]
  - NAUSEA [None]
  - OROPHARYNGEAL PAIN [None]
  - PHARYNGEAL ERYTHEMA [None]
  - SENSATION OF FOREIGN BODY [None]
  - THROAT IRRITATION [None]
